FAERS Safety Report 6670350-7 (Version None)
Quarter: 2010Q2

REPORT INFORMATION
  Report Type: 
  Country: None (occurrence: None)
  Receive Date: 20100405
  Receipt Date: 20100324
  Transmission Date: 20101027
  Serious: Yes (Hospitalization)
  Sender: FDA-Public Use
  Company Number: JPI-P-010083

PATIENT
  Age: 25 Year
  Sex: Male
  Weight: 74.8435 kg

DRUGS (9)
  1. XYREM [Suspect]
     Indication: CATAPLEXY
     Dosage: SEE IMAGE, ORAL
     Route: 048
     Dates: start: 20100219, end: 20100101
  2. XYREM [Suspect]
     Indication: CATAPLEXY
     Dosage: SEE IMAGE, ORAL
     Route: 048
     Dates: start: 20100203, end: 20100201
  3. XYREM [Suspect]
     Indication: CATAPLEXY
     Dosage: SEE IMAGE, ORAL
     Route: 048
     Dates: start: 20100201, end: 20100218
  4. XYREM [Suspect]
     Indication: CATAPLEXY
     Dosage: SEE IMAGE, ORAL
     Route: 048
     Dates: start: 20100101
  5. XYREM [Suspect]
     Indication: CATAPLEXY
     Dosage: SEE IMAGE, ORAL
     Route: 048
     Dates: start: 20100101
  6. CLONAZEPAM [Concomitant]
  7. ALPRAZOLAM [Concomitant]
  8. PAROXETINE HCL [Concomitant]
  9. QUETIAPINE FUMARATE [Concomitant]

REACTIONS (8)
  - COLONIC OBSTRUCTION [None]
  - DISORIENTATION [None]
  - DIZZINESS [None]
  - FATIGUE [None]
  - FEELING ABNORMAL [None]
  - HYPERSOMNIA [None]
  - INSOMNIA [None]
  - MALAISE [None]
